FAERS Safety Report 6151668-3 (Version None)
Quarter: 2009Q2

REPORT INFORMATION
  Report Type: 
  Country: None (occurrence: None)
  Receive Date: 20090410
  Receipt Date: 20090406
  Transmission Date: 20091009
  Serious: Yes (Other)
  Sender: FDA-Public Use
  Company Number: US-AVENTIS-200912895US

PATIENT
  Age: 65 Year
  Sex: Male

DRUGS (3)
  1. LANTUS [Suspect]
     Indication: TYPE 2 DIABETES MELLITUS
     Route: 058
  2. NOVOLOG [Concomitant]
     Dosage: DOSE: UNK
  3. BYETTA [Concomitant]
     Dosage: DOSE: UNK

REACTIONS (2)
  - CATARACT [None]
  - CONDITION AGGRAVATED [None]
